FAERS Safety Report 16354902 (Version 1)
Quarter: 2019Q2

REPORT INFORMATION
  Report Type: Spontaneous
  Country: GB (occurrence: GB)
  Receive Date: 20190524
  Receipt Date: 20190524
  Transmission Date: 20190711
  Serious: Yes (Other)
  Sender: FDA-Public Use
  Company Number: GB-TEVA-2019-GB-1053407

PATIENT
  Age: 89 Year
  Sex: Female
  Weight: 51 kg

DRUGS (8)
  1. CLOPIDOGREL [Concomitant]
     Active Substance: CLOPIDOGREL BISULFATE
     Dosage: 1 DF FOR 1 DAY
     Dates: start: 20190103
  2. OMEPRAZOLE. [Concomitant]
     Active Substance: OMEPRAZOLE
     Dosage: 1 DF FOR 1 DAY
     Dates: start: 20181224
  3. GABAPENTIN. [Suspect]
     Active Substance: GABAPENTIN
     Dosage: 300MG PER 1 DAY
     Dates: start: 20190405
  4. OTOMIZE [Concomitant]
     Active Substance: DEXAMETHASONE\NEOMYCIN SULFATE
     Dosage: USE AS DIRECTED
     Dates: start: 20181221
  5. IBUPROFEN. [Concomitant]
     Active Substance: IBUPROFEN
     Dosage: APPLY 3DF FOR 1 DAY
     Dates: start: 20190325, end: 20190326
  6. TRAMADOL. [Concomitant]
     Active Substance: TRAMADOL
     Dosage: TAKE 1 OR 2 UP TO 4 TIMES DAILY
     Dates: start: 20190318, end: 20190403
  7. AMLODIPINE [Concomitant]
     Active Substance: AMLODIPINE BESYLATE
     Dosage: 1 DF FOR 1 DAY
     Dates: start: 20190103
  8. PARACETAMOL [Concomitant]
     Active Substance: ACETAMINOPHEN
     Dosage: RECOMMEND SELF PURCHASE FOR SHORT TERM USE-TAKE...
     Dates: start: 20181224

REACTIONS (1)
  - Hallucination [Recovered/Resolved]

NARRATIVE: CASE EVENT DATE: 20190410
